FAERS Safety Report 6666484-3 (Version None)
Quarter: 2010Q2

REPORT INFORMATION
  Report Type: 
  Country: None (occurrence: None)
  Receive Date: 20100402
  Receipt Date: 20100326
  Transmission Date: 20101027
  Serious: Yes (Hospitalization)
  Sender: FDA-Public Use
  Company Number: GB-AMGEN-UK366887

PATIENT
  Sex: Male
  Weight: 58 kg

DRUGS (10)
  1. NEULASTA [Suspect]
     Indication: CHEMOTHERAPY
     Route: 058
     Dates: start: 20090828
  2. GEMCITABINE HCL [Suspect]
     Route: 042
  3. VINCRISTINE [Suspect]
     Route: 042
  4. CYCLOPHOSPHAMIDE [Concomitant]
     Route: 042
  5. PREDNISOLONE [Concomitant]
     Route: 048
  6. RITUXIMAB [Concomitant]
     Route: 042
  7. BISOPROLOL [Concomitant]
     Route: 048
  8. COTRIM [Concomitant]
     Route: 048
     Dates: start: 20090731
  9. ALLOPURINOL [Concomitant]
     Route: 048
     Dates: start: 20090731
  10. ASPIRIN [Concomitant]
     Route: 048

REACTIONS (1)
  - BACK PAIN [None]
